FAERS Safety Report 21194236 (Version 3)
Quarter: 2023Q4

REPORT INFORMATION
  Report Type: Spontaneous
  Country: CH (occurrence: CH)
  Receive Date: 20220810
  Receipt Date: 20231027
  Transmission Date: 20240110
  Serious: Yes (Hospitalization, Other)
  Sender: FDA-Public Use
  Company Number: CH-JNJFOC-20220815271

PATIENT
  Age: 66 Year
  Sex: Male
  Weight: 94 kg

DRUGS (10)
  1. ERLEADA [Suspect]
     Active Substance: APALUTAMIDE
     Indication: Hormone-dependent prostate cancer
     Route: 048
     Dates: start: 20220603, end: 20220723
  2. ERLEADA [Suspect]
     Active Substance: APALUTAMIDE
     Route: 048
     Dates: start: 20220603, end: 20220724
  3. METFORMIN [Concomitant]
     Active Substance: METFORMIN HYDROCHLORIDE
     Indication: Type 2 diabetes mellitus
     Route: 065
     Dates: start: 20210701
  4. CALCIUM\CHOLECALCIFEROL [Concomitant]
     Active Substance: CALCIUM\CHOLECALCIFEROL
     Indication: Osteoporosis prophylaxis
     Dosage: 500/1000?500MG/ 440 IU
     Route: 065
     Dates: start: 20220624, end: 20220724
  5. VITAMIN B [Concomitant]
     Active Substance: VITAMIN B
     Indication: Product used for unknown indication
     Route: 065
     Dates: start: 202205, end: 202207
  6. CANDESARTAN CILEXETIL [Concomitant]
     Active Substance: CANDESARTAN CILEXETIL
     Indication: Hypertension
     Dosage: 8/12.5 MG
     Route: 065
     Dates: start: 20180101
  7. CASODEX [Concomitant]
     Active Substance: BICALUTAMIDE
     Indication: Prostate cancer
     Route: 048
     Dates: start: 20220412, end: 20220512
  8. GOSERELIN [Concomitant]
     Active Substance: GOSERELIN
     Indication: Prostate cancer
     Route: 065
     Dates: start: 20220422
  9. PROLIA [Concomitant]
     Active Substance: DENOSUMAB
     Indication: Prostate cancer
     Route: 058
     Dates: start: 20220722
  10. PROLIA [Concomitant]
     Active Substance: DENOSUMAB
     Indication: Osteoporosis prophylaxis

REACTIONS (2)
  - Neutropenia [Recovered/Resolved]
  - Leukopenia [Recovering/Resolving]

NARRATIVE: CASE EVENT DATE: 20220624
